FAERS Safety Report 18630266 (Version 2)
Quarter: 2020Q4

REPORT INFORMATION
  Report Type: Spontaneous
  Country: IL (occurrence: IL)
  Receive Date: 20201217
  Receipt Date: 20201231
  Transmission Date: 20210114
  Serious: Yes (Other)
  Sender: FDA-Public Use
  Company Number: IL-ELI_LILLY_AND_COMPANY-DG202012007467

PATIENT
  Age: 44 Year
  Sex: Male

DRUGS (1)
  1. SELPERCATINIB. [Suspect]
     Active Substance: SELPERCATINIB
     Indication: PAPILLARY THYROID CANCER
     Route: 065

REACTIONS (1)
  - Myocardial ischaemia [Unknown]
